FAERS Safety Report 8966880 (Version 1)
Quarter: 2012Q4

REPORT INFORMATION
  Report Type: 
  Country: US (occurrence: US)
  Receive Date: 20121214
  Receipt Date: 20121214
  Transmission Date: 20130627
  Serious: No
  Sender: FDA-Public Use
  Company Number: US-009507513-1212USA002859

PATIENT
  Age: 59 Year
  Sex: Male

DRUGS (3)
  1. VICTRELIS [Suspect]
     Dosage: 800 mg, tid
     Route: 048
     Dates: start: 20121018
  2. PEGINTRON [Suspect]
     Dosage: 120 Microgram, UNK
     Dates: start: 20121018
  3. RIBASPHERE [Suspect]
     Dosage: 400 mg, bid
     Dates: start: 20121018

REACTIONS (2)
  - Fatigue [Unknown]
  - Pain [Unknown]
